FAERS Safety Report 4477189-1 (Version None)
Quarter: 2004Q4

REPORT INFORMATION
  Report Type: 
  Country: None (occurrence: None)
  Receive Date: 20041018
  Receipt Date: 20041013
  Transmission Date: 20050328
  Serious: Yes (Other)
  Sender: FDA-Public Use
  Company Number: CA-MERCK-0410CAN00259

PATIENT
  Age: 61 Year
  Sex: Male

DRUGS (3)
  1. ACETAMINOPHEN AND CODEINE PHOSPHATE [Concomitant]
     Route: 065
  2. VIOXX [Suspect]
     Indication: ANALGESIC EFFECT
     Route: 048
  3. VIOXX [Suspect]
     Indication: ANTIINFLAMMATORY THERAPY
     Route: 048

REACTIONS (1)
  - CEREBROVASCULAR ACCIDENT [None]
